FAERS Safety Report 14186046 (Version 1)
Quarter: 2017Q4

REPORT INFORMATION
  Report Type: Spontaneous
  Country: US (occurrence: None)
  Receive Date: 20171112
  Receipt Date: 20171112
  Transmission Date: 20180321
  Serious: Yes (Hospitalization)
  Sender: FDA-Public Use
  Company Number: None

PATIENT
  Age: 57 Year
  Sex: Female

DRUGS (1)
  1. CAPECITABINE. [Suspect]
     Active Substance: CAPECITABINE
     Indication: RECTAL CANCER
     Dosage: 1000 MG Q12HOURS X7 DAYS ON, 7 DAYS OFF PO
     Route: 048
     Dates: start: 20170815, end: 20170901

REACTIONS (2)
  - Urinary tract infection [None]
  - Kidney infection [None]

NARRATIVE: CASE EVENT DATE: 20170901
